FAERS Safety Report 7643895-0 (Version None)
Quarter: 2011Q3

REPORT INFORMATION
  Report Type: 
  Country: None (occurrence: None)
  Receive Date: 20110729
  Receipt Date: 20110210
  Transmission Date: 20111222
  Serious: Yes (Other)
  Sender: FDA-Public Use
  Company Number: US-GLAXOSMITHKLINE-A0912899A

PATIENT
  Age: 23 Year
  Sex: Female

DRUGS (5)
  1. SINGULAIR [Concomitant]
  2. MEDROL [Concomitant]
  3. XYZAL [Concomitant]
  4. YAZ [Concomitant]
     Indication: CONTRACEPTION
  5. IMITREX [Suspect]
     Indication: MIGRAINE
     Dosage: 50MG AS REQUIRED
     Route: 048
     Dates: start: 20110203, end: 20110203

REACTIONS (1)
  - HALLUCINATION [None]
